FAERS Safety Report 24298959 (Version 1)
Quarter: 2024Q3

REPORT INFORMATION
  Report Type: Report from Study
  Country: US (occurrence: US)
  Receive Date: 20240909
  Receipt Date: 20240909
  Transmission Date: 20241017
  Serious: Yes (Hospitalization, Other)
  Sender: SUNOVION
  Company Number: US-SUMITOMO PHARMA SWITZERLAND GMBH-2024SPA001997

PATIENT

DRUGS (2)
  1. ORGOVYX [Suspect]
     Active Substance: RELUGOLIX
     Indication: Prostate cancer
     Dosage: 360 MG
     Route: 048
     Dates: start: 20220518, end: 20220518
  2. ORGOVYX [Suspect]
     Active Substance: RELUGOLIX
     Dosage: 120 MG, QD
     Route: 048
     Dates: start: 20220519

REACTIONS (9)
  - Cystitis radiation [Unknown]
  - Pneumonia [Recovered/Resolved]
  - Diverticulum [Unknown]
  - Radiation proctitis [Unknown]
  - Body temperature fluctuation [Unknown]
  - Polyp [Recovered/Resolved]
  - Prostatic specific antigen decreased [Unknown]
  - Surgery [Unknown]
  - Hot flush [Unknown]
